FAERS Safety Report 23668597 (Version 1)
Quarter: 2024Q1

REPORT INFORMATION
  Report Type: Spontaneous
  Country: GB (occurrence: GB)
  Receive Date: 20240325
  Receipt Date: 20240325
  Transmission Date: 20240410
  Serious: Yes (Hospitalization)
  Sender: FDA-Public Use
  Company Number: None

PATIENT
  Age: 85 Year

DRUGS (10)
  1. LANSOPRAZOLE [Suspect]
     Active Substance: LANSOPRAZOLE
     Dosage: EACH MORNING
     Route: 065
  2. DORZOLAMIDE [Concomitant]
     Active Substance: DORZOLAMIDE
     Dosage: BOTH EYES, 0.2ML UNIT DOSE
  3. AMLODIPINE [Concomitant]
     Active Substance: AMLODIPINE BESYLATE
     Dosage: EVERY MORNING
  4. METHYLPREDNISOLONE [Concomitant]
     Active Substance: METHYLPREDNISOLONE
     Dosage: 80MG/2ML
  5. SERTRALINE [Concomitant]
     Active Substance: SERTRALINE HYDROCHLORIDE
     Dosage: EACH MORNING
  6. MEMANTINE [Concomitant]
     Active Substance: MEMANTINE
     Dosage: EACH NIGHT
  7. ASPIRIN [Concomitant]
     Active Substance: ASPIRIN
     Dosage: EACH MORNING
  8. PERINDOPRIL [Concomitant]
     Active Substance: PERINDOPRIL
     Dosage: EACH MORNING
  9. TAFLUPROST [Concomitant]
     Active Substance: TAFLUPROST
     Dosage: AT NIGHT (BOTH EYES), 15MCG/ML 0.3ML UNIT DROPS
  10. POLYETHYLENE GLYCOL 3350\POTASSIUM CHLORIDE\SODIUM BICARBONATE\SODIUM [Concomitant]
     Active Substance: POLYETHYLENE GLYCOL 3350\POTASSIUM CHLORIDE\SODIUM BICARBONATE\SODIUM CHLORIDE
     Dosage: SACHETS, NPF SUGAR FREE

REACTIONS (1)
  - Femoral neck fracture [Unknown]
